FAERS Safety Report 19725114 (Version 1)
Quarter: 2021Q3

REPORT INFORMATION
  Report Type: Spontaneous
  Country: DE (occurrence: DE)
  Receive Date: 20210820
  Receipt Date: 20210820
  Transmission Date: 20211014
  Serious: Yes (Other)
  Sender: FDA-Public Use
  Company Number: DE-AUROBINDO-AUR-APL-2012-00878

PATIENT
  Sex: Female
  Weight: 3.82 kg

DRUGS (4)
  1. SERTRALINE [Suspect]
     Active Substance: SERTRALINE HYDROCHLORIDE
     Indication: PERSONALITY DISORDER
     Dosage: 150 MG,DAILY,
     Route: 064
  2. RISPERDAL [Suspect]
     Active Substance: RISPERIDONE
     Indication: PERSONALITY DISORDER
     Dosage: 1 MILLIGRAM, DAILY
     Route: 064
     Dates: start: 20101207, end: 20110901
  3. ACTRAPID [Concomitant]
     Active Substance: INSULIN HUMAN
     Indication: GESTATIONAL DIABETES
     Dosage: 40 UNK,DAILY,
     Route: 064
  4. PROTAPHANE [Concomitant]
     Active Substance: INSULIN HUMAN
     Indication: GESTATIONAL DIABETES
     Dosage: 35 UNK,DAILY,
     Route: 064

REACTIONS (3)
  - Foetal exposure during pregnancy [Recovered/Resolved]
  - Neonatal respiratory distress [Recovered/Resolved]
  - Hypertonia neonatal [Recovered/Resolved]

NARRATIVE: CASE EVENT DATE: 20110901
